FAERS Safety Report 6918676-3 (Version None)
Quarter: 2010Q3

REPORT INFORMATION
  Report Type: 
  Country: None (occurrence: None)
  Receive Date: 20100811
  Receipt Date: 20100727
  Transmission Date: 20110219
  Serious: No
  Sender: FDA-Public Use
  Company Number: PHHY2010US50078

PATIENT
  Sex: Male

DRUGS (8)
  1. TASIGNA [Suspect]
     Indication: ACUTE MYELOID LEUKAEMIA
     Dosage: 200 MG
     Route: 048
  2. ACIPHEX [Interacting]
  3. XALATAN [Concomitant]
  4. ALLEGRA D 24 HOUR [Concomitant]
  5. LIPITOR [Concomitant]
  6. PLAVIX [Concomitant]
  7. ASPIRIN [Concomitant]
  8. RESTORIL [Concomitant]

REACTIONS (2)
  - DRUG INTERACTION [None]
  - GASTRIC PH INCREASED [None]
